FAERS Safety Report 23471086 (Version 1)
Quarter: 2024Q1

REPORT INFORMATION
  Report Type: Spontaneous
  Country: JP (occurrence: JP)
  Receive Date: 20240202
  Receipt Date: 20240202
  Transmission Date: 20240410
  Serious: Yes (Other)
  Sender: FDA-Public Use
  Company Number: JP-PFIZER INC-PV202400015222

PATIENT
  Age: 9 Decade
  Sex: Female

DRUGS (3)
  1. AZULFIDINE EN-TABS [Suspect]
     Active Substance: SULFASALAZINE
     Indication: Rheumatoid arthritis
     Dosage: UNK
     Route: 048
  2. ETANERCEPT BS [ETANERCEPT BIOSIMILAR 1] [Concomitant]
     Indication: Rheumatoid arthritis
     Dosage: UNK
     Route: 058
     Dates: start: 202309, end: 20240126
  3. VITANEURIN [FURSULTIAMINE HYDROCHLORIDE;HYDROXOCOBALAMIN ACETATE;PYRID [Concomitant]
     Dosage: UNK
     Route: 048
     Dates: end: 20240126

REACTIONS (1)
  - Oral neoplasm [Not Recovered/Not Resolved]

NARRATIVE: CASE EVENT DATE: 20240126
